FAERS Safety Report 11204977 (Version 1)
Quarter: 2015Q2

REPORT INFORMATION
  Report Type: Spontaneous
  Country: US (occurrence: None)
  Receive Date: 20150618
  Receipt Date: 20150618
  Transmission Date: 20150821
  Serious: No
  Sender: FDA-Public Use
  Company Number: None

PATIENT
  Age: 61 Year
  Sex: Male
  Weight: 76.7 kg

DRUGS (1)
  1. HARVONI [Suspect]
     Active Substance: LEDIPASVIR\SOFOSBUVIR
     Indication: HEPATITIS C
     Route: 048
     Dates: start: 20150516

REACTIONS (5)
  - Electrocardiogram ST segment elevation [None]
  - Pericarditis [None]
  - Coronary artery embolism [None]
  - Chest pain [None]
  - Coronary artery occlusion [None]

NARRATIVE: CASE EVENT DATE: 20150604
